FAERS Safety Report 5088648-5 (Version None)
Quarter: 2006Q3

REPORT INFORMATION
  Report Type: 
  Country: None (occurrence: None)
  Receive Date: 20060825
  Receipt Date: 20060815
  Transmission Date: 20061208
  Serious: Yes (Other)
  Sender: FDA-Public Use
  Company Number: US-BRISTOL-MYERS SQUIBB COMPANY-13475819

PATIENT
  Age: 56 Year
  Sex: Male

DRUGS (2)
  1. AMPICILLIN [Suspect]
  2. VANCOMYCIN [Suspect]
     Route: 042

REACTIONS (1)
  - ENDOCARDITIS [None]
